FAERS Safety Report 9276328 (Version 1)
Quarter: 2013Q2

REPORT INFORMATION
  Report Type: Spontaneous
  Country: BR (occurrence: BR)
  Receive Date: 20130507
  Receipt Date: 20130507
  Transmission Date: 20140414
  Serious: Yes (Hospitalization)
  Sender: FDA-Public Use
  Company Number: BR-PFIZER INC-2013139458

PATIENT
  Age: 74 Year
  Sex: Female
  Weight: 81 kg

DRUGS (3)
  1. CELEBRA [Suspect]
     Indication: ARTHRALGIA
     Dosage: 1 CAPSULE OF STRENGTH 200 MG, DAILY
     Route: 048
     Dates: start: 2009
  2. SERETIDE [Concomitant]
     Indication: BRONCHITIS
     Dosage: AT AN UNKNOWN DOSE INHALED TWICE DAILY
     Dates: start: 2003
  3. DOLAMIN FLEX [Concomitant]
     Indication: ARTHRALGIA
     Dosage: 1 TABLET DAILY, IN CASE SHE FEEL MUCH PAIN IN THE KNEES
     Dates: start: 201303

REACTIONS (2)
  - Osteoarthritis [Unknown]
  - Chondropathy [Unknown]
